FAERS Safety Report 25035900 (Version 2)
Quarter: 2025Q3

REPORT INFORMATION
  Report Type: Report from Study
  Country: US (occurrence: US)
  Receive Date: 20250304
  Receipt Date: 20250810
  Transmission Date: 20251021
  Serious: Yes (Other)
  Sender: ALEXION PHARMACEUTICALS
  Company Number: US-AstraZeneca-CH-00816418A

PATIENT
  Age: 42 Year
  Sex: Female

DRUGS (1)
  1. OLAPARIB [Suspect]
     Active Substance: OLAPARIB
     Indication: Breast cancer female
     Dosage: 150 MILLIGRAM, BID
     Dates: start: 20241128

REACTIONS (7)
  - Neuropathy peripheral [Unknown]
  - Blood sodium decreased [Unknown]
  - Hypoaesthesia [Unknown]
  - Migraine [Unknown]
  - Blood potassium decreased [Unknown]
  - Diabetes mellitus [Unknown]
  - Device defective [Unknown]

NARRATIVE: CASE EVENT DATE: 20250225
